FAERS Safety Report 23700218 (Version 1)
Quarter: 2024Q2

REPORT INFORMATION
  Report Type: Spontaneous
  Country: IT (occurrence: IT)
  Receive Date: 20240403
  Receipt Date: 20240403
  Transmission Date: 20240716
  Serious: Yes (Other)
  Sender: FDA-Public Use
  Company Number: None

PATIENT
  Age: 40 Year
  Sex: Female

DRUGS (10)
  1. LAMOTRIGINE [Suspect]
     Active Substance: LAMOTRIGINE
     Indication: Relapsing-remitting multiple sclerosis
     Dosage: 200 MG, 2 TIMES PER DAY
  2. LAMOTRIGINE [Suspect]
     Active Substance: LAMOTRIGINE
     Indication: Epilepsy
  3. LACOSAMIDE [Suspect]
     Active Substance: LACOSAMIDE
     Indication: Epilepsy
     Dosage: 100 MG, 2 TIMES PER DAY
  4. LACOSAMIDE [Suspect]
     Active Substance: LACOSAMIDE
     Indication: Relapsing-remitting multiple sclerosis
  5. PREGABALIN [Suspect]
     Active Substance: PREGABALIN
     Indication: Relapsing-remitting multiple sclerosis
     Dosage: 75 MG, 2 TIMES PER DAY
  6. PREGABALIN [Suspect]
     Active Substance: PREGABALIN
     Indication: Epilepsy
  7. GLATIRAMER ACETATE [Concomitant]
     Active Substance: GLATIRAMER ACETATE
     Indication: Relapsing-remitting multiple sclerosis
     Dosage: 40 MG, THRICE A WEEK
     Route: 058
  8. GADOLINIUM [Concomitant]
     Active Substance: GADOLINIUM
     Indication: Relapsing-remitting multiple sclerosis
     Dosage: UNK
  9. METHYLPREDNISOLONE [Concomitant]
     Active Substance: METHYLPREDNISOLONE
     Indication: Epilepsy
     Dosage: 1 G
     Route: 042
  10. METHYLPREDNISOLONE [Concomitant]
     Active Substance: METHYLPREDNISOLONE
     Indication: Relapsing-remitting multiple sclerosis

REACTIONS (3)
  - Cognitive disorder [Recovering/Resolving]
  - Somnolence [Recovering/Resolving]
  - Asthenia [Recovering/Resolving]
